FAERS Safety Report 5882585-1 (Version None)
Quarter: 2008Q3

REPORT INFORMATION
  Report Type: 
  Country: None (occurrence: None)
  Receive Date: 20080913
  Receipt Date: 20080807
  Transmission Date: 20090109
  Serious: No
  Sender: FDA-Public Use
  Company Number: US-ABBOTT-08P-163-0469798-00

PATIENT
  Sex: Male
  Weight: 77.18 kg

DRUGS (13)
  1. HUMIRA [Suspect]
     Indication: CROHN'S DISEASE
     Route: 058
     Dates: start: 20080401, end: 20080401
  2. HUMIRA [Suspect]
     Route: 058
  3. HUMIRA [Suspect]
     Route: 058
  4. PREDNISONE TAB [Concomitant]
     Indication: CROHN'S DISEASE
     Route: 048
  5. MESALAMINE [Concomitant]
     Indication: CROHN'S DISEASE
     Dosage: 250MG X 12/DAY
     Route: 048
     Dates: start: 19680101
  6. METOPROLOL SUCCINATE [Concomitant]
     Indication: HYPERTENSION
     Route: 048
     Dates: start: 19980101
  7. RAMIPRIL [Concomitant]
     Indication: HYPERTENSION
     Route: 048
     Dates: start: 19980101
  8. AMLODIPINE [Concomitant]
     Indication: HYPERTENSION
     Route: 048
     Dates: start: 20020101
  9. MORNIFLUMATE [Concomitant]
     Indication: PROSTATIC DISORDER
     Route: 048
     Dates: start: 19980101
  10. DORZOLAMIDE HYDROCHLORIDE [Concomitant]
     Indication: GLAUCOMA
     Dosage: ONE DROP EACH EYE 2 X DAILY
     Route: 047
     Dates: start: 19880101
  11. LATANOPROST [Concomitant]
     Indication: GLAUCOMA
     Dosage: ONE DROP EACH EYE DAILY
     Route: 047
     Dates: start: 19880101
  12. ACETYLSALICYLIC ACID SRT [Concomitant]
     Indication: CARDIOVASCULAR EVENT PROPHYLAXIS
     Route: 048
     Dates: start: 19930101
  13. INSULIN ASPART [Concomitant]
     Indication: DIABETES MELLITUS
     Dates: start: 20000101

REACTIONS (1)
  - FUNGAL SKIN INFECTION [None]
